FAERS Safety Report 18740875 (Version 1)
Quarter: 2021Q1

REPORT INFORMATION
  Report Type: Spontaneous
  Country: JP (occurrence: JP)
  Receive Date: 20210114
  Receipt Date: 20210114
  Transmission Date: 20210419
  Serious: Yes (Hospitalization)
  Sender: FDA-Public Use
  Company Number: JP-MYLANLABS-2021M1001186

PATIENT
  Age: 4 Year
  Sex: Male
  Weight: 14.9 kg

DRUGS (1)
  1. EPIPEN [Suspect]
     Active Substance: EPINEPHRINE
     Indication: ANAPHYLACTIC REACTION
     Dosage: 0.15 MILLIGRAM, QD
     Route: 030
     Dates: start: 20201220

REACTIONS (1)
  - Injection site laceration [Unknown]

NARRATIVE: CASE EVENT DATE: 20201220
